FAERS Safety Report 19472912 (Version 1)
Quarter: 2021Q2

REPORT INFORMATION
  Report Type: Report from Study
  Country: None (occurrence: BR)
  Receive Date: 20210629
  Receipt Date: 20210629
  Transmission Date: 20210717
  Serious: Yes (Disabling, Other)
  Sender: FDA-Public Use
  Company Number: BR-ABBVIE-21K-020-3965942-00

PATIENT
  Age: 33 Year
  Sex: Male
  Weight: 81 kg

DRUGS (9)
  1. FOSTAIR [Concomitant]
     Active Substance: BECLOMETHASONE\FORMOTEROL
     Indication: ASTHMA
     Dosage: TWO JETS IN THE MORNING AND NIGHT
     Route: 048
  2. FOSTAIR [Concomitant]
     Active Substance: BECLOMETHASONE\FORMOTEROL
     Indication: DYSPNOEA
  3. HUMIRA [Suspect]
     Active Substance: ADALIMUMAB
     Route: 058
     Dates: end: 202102
  4. HUMIRA [Suspect]
     Active Substance: ADALIMUMAB
     Route: 058
     Dates: end: 202103
  5. DONAREN [Suspect]
     Active Substance: TRAZODONE HYDROCHLORIDE
     Indication: PERICARDIAL EFFUSION
     Route: 048
  6. HUMIRA [Suspect]
     Active Substance: ADALIMUMAB
     Indication: ANKYLOSING SPONDYLITIS
     Route: 058
     Dates: end: 202012
  7. FLU VACCINE [Concomitant]
     Active Substance: INFLUENZA VIRUS VACCINE
     Indication: PRODUCT USED FOR UNKNOWN INDICATION
     Route: 050
     Dates: start: 20210622
  8. HUMIRA [Suspect]
     Active Substance: ADALIMUMAB
     Route: 058
     Dates: end: 202101
  9. COVID?19 VACCINE [Concomitant]
     Indication: COVID-19 IMMUNISATION
     Route: 030
     Dates: start: 20210603

REACTIONS (31)
  - Nasal septum deviation [Unknown]
  - Nervous system disorder [Unknown]
  - Malaise [Unknown]
  - Vision blurred [Unknown]
  - Hepatic pain [Unknown]
  - Asthenia [Unknown]
  - Insomnia [Recovering/Resolving]
  - Dysphagia [Unknown]
  - Tachycardia [Unknown]
  - COVID-19 [Recovered/Resolved]
  - Facial pain [Unknown]
  - Hypertension [Recovered/Resolved]
  - Panic reaction [Unknown]
  - Restlessness [Unknown]
  - Pain in extremity [Unknown]
  - Pain in extremity [Unknown]
  - Rhinitis allergic [Recovering/Resolving]
  - Nasal inflammation [Unknown]
  - Blood pressure increased [Unknown]
  - Hypertension [Unknown]
  - Pericardial effusion [Recovering/Resolving]
  - Insomnia [Unknown]
  - Gastritis bacterial [Recovering/Resolving]
  - Immunodeficiency [Unknown]
  - Cardiac disorder [Unknown]
  - COVID-19 [Recovered/Resolved]
  - Sinusitis [Recovering/Resolving]
  - Cardiac disorder [Unknown]
  - Nasal obstruction [Unknown]
  - COVID-19 [Recovered/Resolved]
  - Palpitations [Unknown]

NARRATIVE: CASE EVENT DATE: 202011
